FAERS Safety Report 7504571-8 (Version None)
Quarter: 2011Q2

REPORT INFORMATION
  Report Type: 
  Country: None (occurrence: None)
  Receive Date: 20110525
  Receipt Date: 20100917
  Transmission Date: 20111010
  Serious: No
  Sender: FDA-Public Use
  Company Number: US-KINGPHARMUSA00001-K201001278

PATIENT
  Sex: Female
  Weight: 68.027 kg

DRUGS (1)
  1. PRALIDOXIME CHLORIDE [Suspect]
     Dosage: 600 MG, SINGLE
     Dates: start: 20100820, end: 20100820

REACTIONS (4)
  - EXPIRED DRUG ADMINISTERED [None]
  - INJECTION SITE INJURY [None]
  - ACCIDENTAL EXPOSURE [None]
  - INJECTION SITE PAIN [None]
